FAERS Safety Report 19298563 (Version 7)
Quarter: 2022Q3

REPORT INFORMATION
  Report Type: Report from Study
  Country: FR (occurrence: FR)
  Receive Date: 20210524
  Receipt Date: 20220714
  Transmission Date: 20221027
  Serious: Yes (Other)
  Sender: FDA-Public Use
  Company Number: NVSC2021FR115339

PATIENT
  Sex: Female
  Weight: 70 kg

DRUGS (2)
  1. ALPELISIB [Suspect]
     Active Substance: ALPELISIB
     Indication: PIK3CA related overgrowth spectrum
     Dosage: 2X125 MG, QD
     Route: 048
     Dates: start: 20210218
  2. ALPELISIB [Suspect]
     Active Substance: ALPELISIB
     Dosage: 125 MG, QD
     Route: 065

REACTIONS (3)
  - Hyperglycaemia [Not Recovered/Not Resolved]
  - Xerophthalmia [Not Recovered/Not Resolved]
  - Alopecia [Not Recovered/Not Resolved]

NARRATIVE: CASE EVENT DATE: 20210218
